FAERS Safety Report 5674745-X (Version None)
Quarter: 2008Q1

REPORT INFORMATION
  Report Type: 
  Country: None (occurrence: None)
  Receive Date: 20080320
  Receipt Date: 20080313
  Transmission Date: 20080703
  Serious: Yes (Other)
  Sender: FDA-Public Use
  Company Number: MX-ROCHE-553308

PATIENT
  Sex: Female

DRUGS (2)
  1. VALIUM [Suspect]
     Indication: DELIRIUM
     Route: 048
  2. MIDAZOLAM HCL [Concomitant]

REACTIONS (1)
  - CARDIO-RESPIRATORY ARREST [None]
